APPROVED DRUG PRODUCT: CLINDAMYCIN PHOSPHATE
Active Ingredient: CLINDAMYCIN PHOSPHATE
Strength: EQ 1% BASE
Dosage Form/Route: SOLUTION;TOPICAL
Application: A062811 | Product #001
Applicant: G AND W LABORATORIES INC
Approved: Sep 1, 1988 | RLD: No | RS: No | Type: DISCN